FAERS Safety Report 24645299 (Version 1)
Quarter: 2024Q4

REPORT INFORMATION
  Report Type: Spontaneous
  Country: IL (occurrence: IL)
  Receive Date: 20241121
  Receipt Date: 20241121
  Transmission Date: 20250115
  Serious: Yes (Other)
  Sender: CHEPLAPHARM
  Company Number: IL-CHEPLA-2024014637

PATIENT
  Age: 35 Week
  Sex: Male

DRUGS (3)
  1. GANCICLOVIR [Suspect]
     Active Substance: GANCICLOVIR
     Indication: Cytomegalovirus infection
     Route: 042
  2. VALGANCICLOVIR [Suspect]
     Active Substance: VALGANCICLOVIR
     Indication: Cytomegalovirus infection
  3. NITRIC OXIDE [Concomitant]
     Active Substance: NITRIC OXIDE
     Route: 055

REACTIONS (11)
  - Neonatal asphyxia [Unknown]
  - Hypotonia neonatal [Unknown]
  - Pancytopenia [Unknown]
  - Acidosis [Unknown]
  - Base excess [Unknown]
  - Brain scan abnormal [Unknown]
  - Cardiac contractility decreased [Unknown]
  - Coagulation test abnormal [Unknown]
  - Nervous system disorder [Unknown]
  - Off label use [Unknown]
  - Off label use [Unknown]
